APPROVED DRUG PRODUCT: BISOPROLOL FUMARATE
Active Ingredient: BISOPROLOL FUMARATE
Strength: 10MG
Dosage Form/Route: TABLET;ORAL
Application: A077910 | Product #002 | TE Code: AB
Applicant: AUROBINDO PHARMA LTD
Approved: Dec 27, 2006 | RLD: No | RS: No | Type: RX